FAERS Safety Report 5396182-8 (Version None)
Quarter: 2007Q3

REPORT INFORMATION
  Report Type: 
  Country: None (occurrence: None)
  Receive Date: 20070725
  Receipt Date: 20070718
  Transmission Date: 20080115
  Serious: Yes (Other)
  Sender: FDA-Public Use
  Company Number: HQWYE157320JUL07

PATIENT
  Sex: Female
  Weight: 56.3 kg

DRUGS (15)
  1. RAPAMUNE [Suspect]
     Indication: PROPHYLAXIS AGAINST TRANSPLANT REJECTION
     Dosage: DOSE NOT PROVIDED/SWITCHED TO COMMERCIAL RAPAMUNE
     Route: 048
     Dates: start: 20041119, end: 20060703
  2. RAPAMUNE [Suspect]
     Dosage: DID NOT TAKE MEDICATION
     Route: 048
     Dates: start: 20060704, end: 20060704
  3. RAPAMUNE [Suspect]
     Route: 048
     Dates: start: 20060705, end: 20060705
  4. RAPAMUNE [Suspect]
     Route: 048
     Dates: start: 20060706, end: 20060713
  5. RAPAMUNE [Suspect]
     Dosage: 0 MG
     Route: 048
     Dates: start: 20060714, end: 20060714
  6. RAPAMUNE [Suspect]
     Route: 048
     Dates: start: 20060715
  7. MEDROL [Concomitant]
     Indication: PROPHYLAXIS AGAINST TRANSPLANT REJECTION
     Route: 048
  8. ZETIA [Concomitant]
     Indication: HYPERLIPIDAEMIA
     Route: 048
     Dates: start: 20050113
  9. ARANESP [Concomitant]
     Indication: ANAEMIA
     Route: 058
     Dates: start: 20041128
  10. LABETALOL HCL [Concomitant]
     Indication: HYPERTENSION
     Route: 048
     Dates: start: 20040105
  11. ASPIRIN [Concomitant]
     Indication: PROPHYLAXIS
     Route: 048
  12. PRINIVIL [Concomitant]
     Indication: HYPERTENSION
     Route: 048
     Dates: start: 20041213
  13. NOVOLOG [Concomitant]
     Indication: DIABETES MELLITUS
     Route: 058
     Dates: start: 20050121
  14. CELLCEPT [Concomitant]
     Indication: PROPHYLAXIS AGAINST TRANSPLANT REJECTION
     Route: 048
  15. ZOCOR [Concomitant]
     Indication: HYPERLIPIDAEMIA
     Route: 048
     Dates: start: 20060222

REACTIONS (1)
  - TRANSPLANT REJECTION [None]
